FAERS Safety Report 4582560-3 (Version None)
Quarter: 2005Q1

REPORT INFORMATION
  Report Type: 
  Country: None (occurrence: None)
  Receive Date: 20050215
  Receipt Date: 20050126
  Transmission Date: 20050727
  Serious: Yes (Hospitalization)
  Sender: FDA-Public Use
  Company Number: JP-BRISTOL-MYERS SQUIBB COMPANY-12858627

PATIENT
  Age: 54 Year
  Sex: Male

DRUGS (4)
  1. IFOMIDE [Suspect]
     Indication: EXTRA-OSSEOUS EWING'S SARCOMA
     Dosage: START DATE:  29-NOV-1997.  DURATION 5 DAYS
     Route: 041
     Dates: start: 19971129, end: 19971203
  2. IFOMIDE [Suspect]
     Indication: LUNG CANCER METASTATIC
     Dosage: START DATE:  29-NOV-1997.  DURATION 5 DAYS
     Route: 041
     Dates: start: 19971129, end: 19971203
  3. VEPESID [Suspect]
     Indication: EXTRA-OSSEOUS EWING'S SARCOMA
     Dosage: START DATE:  29-NOV-1997.  DURATION: 5 DAYS
     Route: 041
     Dates: start: 19971129, end: 19971203
  4. VEPESID [Suspect]
     Indication: LUNG CANCER METASTATIC
     Dosage: START DATE:  29-NOV-1997.  DURATION: 5 DAYS
     Route: 041
     Dates: start: 19971129, end: 19971203

REACTIONS (4)
  - DYSPNOEA [None]
  - ENCEPHALOPATHY [None]
  - HEARING IMPAIRED [None]
  - MOANING [None]
